FAERS Safety Report 4869174-2 (Version None)
Quarter: 2005Q4

REPORT INFORMATION
  Report Type: 
  Country: None (occurrence: None)
  Receive Date: 20051230
  Receipt Date: 20051221
  Transmission Date: 20060501
  Serious: Yes (Life-Threatening)
  Sender: FDA-Public Use
  Company Number: FR-ROCHE-429376

PATIENT
  Age: 49 Year
  Sex: Male

DRUGS (11)
  1. FUZEON [Suspect]
     Route: 065
     Dates: start: 20050912, end: 20050913
  2. KIVEXA [Suspect]
     Route: 048
     Dates: start: 20050912, end: 20050913
  3. KALETRA [Concomitant]
     Dates: start: 20050912, end: 20050913
  4. VIREAD [Concomitant]
  5. EMTRIVA [Concomitant]
  6. FORTUM [Concomitant]
  7. CIFLOX [Concomitant]
  8. DIFFU K [Concomitant]
  9. MEPRONIZINE [Concomitant]
  10. ACUPAN [Concomitant]
  11. CLINOMEL [Concomitant]

REACTIONS (1)
  - ACIDOSIS [None]
